FAERS Safety Report 4841265-1 (Version None)
Quarter: 2005Q4

REPORT INFORMATION
  Report Type: 
  Country: None (occurrence: None)
  Receive Date: 20051130
  Receipt Date: 20051121
  Transmission Date: 20060501
  Serious: Yes (Other)
  Sender: FDA-Public Use
  Company Number: PHFR2005GB03805

PATIENT
  Age: 59 Year
  Sex: Female
  Weight: 88 kg

DRUGS (3)
  1. TERBINAFINE [Suspect]
     Indication: ONYCHOMYCOSIS
     Dosage: 250 MG, QD
     Route: 048
     Dates: start: 20051005, end: 20051026
  2. LOFEPRAMINE [Concomitant]
     Indication: DEPRESSION
     Dosage: 70 MG, BID
     Route: 065
     Dates: start: 20040810
  3. PROPRANOLOL [Concomitant]
     Indication: ANXIETY
     Dosage: 40 MG, BID
     Route: 065
     Dates: start: 19920101

REACTIONS (1)
  - MUSCLE SPASMS [None]
